FAERS Safety Report 9998773 (Version 1)
Quarter: 2014Q1

REPORT INFORMATION
  Report Type: Spontaneous
  Country: US (occurrence: US)
  Receive Date: 20140312
  Receipt Date: 20140312
  Transmission Date: 20141002
  Serious: No
  Sender: FDA-Public Use
  Company Number: US-BIOGENIDEC-2014BI019765

PATIENT
  Age: 34 Year
  Sex: Male
  Weight: 88 kg

DRUGS (10)
  1. TECFIDERA [Suspect]
     Indication: RELAPSING-REMITTING MULTIPLE SCLEROSIS
     Dates: start: 201311
  2. TYSABRI [Concomitant]
     Indication: MULTIPLE SCLEROSIS
     Route: 042
     Dates: start: 20130905
  3. LYRICA [Concomitant]
  4. OXYCODONE HCL [Concomitant]
  5. OXYCONTIN [Concomitant]
  6. TIZANIDINE HCL [Concomitant]
  7. TRAZODONE HCL [Concomitant]
  8. AMPYRA [Concomitant]
  9. ZOLOFT [Concomitant]
  10. NORTRIPTYLINE HCL [Concomitant]

REACTIONS (5)
  - Back pain [Unknown]
  - Pain in extremity [Unknown]
  - Sleep disorder [Unknown]
  - Cognitive disorder [Unknown]
  - Memory impairment [Unknown]
